FAERS Safety Report 25250192 (Version 1)
Quarter: 2025Q2

REPORT INFORMATION
  Report Type: Spontaneous
  Country: US (occurrence: US)
  Receive Date: 20250429
  Receipt Date: 20250429
  Transmission Date: 20250716
  Serious: Yes (Other)
  Sender: MYLAN
  Company Number: US-MYLANLABS-2025M1036130

PATIENT
  Age: 42 Year
  Sex: Male

DRUGS (8)
  1. OXALIPLATIN [Suspect]
     Active Substance: OXALIPLATIN
     Indication: Rectal adenocarcinoma
  2. OXALIPLATIN [Suspect]
     Active Substance: OXALIPLATIN
  3. LEUCOVORIN [Suspect]
     Active Substance: LEUCOVORIN\LEUCOVORIN CALCIUM
     Indication: Rectal adenocarcinoma
  4. LEUCOVORIN [Suspect]
     Active Substance: LEUCOVORIN\LEUCOVORIN CALCIUM
  5. FLUOROURACIL [Suspect]
     Active Substance: FLUOROURACIL
     Indication: Rectal adenocarcinoma
  6. FLUOROURACIL [Suspect]
     Active Substance: FLUOROURACIL
  7. IRINOTECAN [Suspect]
     Active Substance: IRINOTECAN
     Indication: Rectal adenocarcinoma
  8. CAPECITABINE [Suspect]
     Active Substance: CAPECITABINE
     Indication: Rectal adenocarcinoma

REACTIONS (1)
  - Drug ineffective [Unknown]
